FAERS Safety Report 4551726-0 (Version None)
Quarter: 2005Q1

REPORT INFORMATION
  Report Type: 
  Country: None (occurrence: None)
  Receive Date: 20050113
  Receipt Date: 19980708
  Transmission Date: 20050727
  Serious: Yes (Death, Life-Threatening, Hospitalization, Other)
  Sender: FDA-Public Use
  Company Number: B039977

PATIENT
  Age: 58 Year
  Sex: Male

DRUGS (6)
  1. VEPESID [Suspect]
     Indication: BRAIN NEOPLASM
     Route: 050
     Dates: start: 19960316, end: 19960318
  2. BRIPLATIN [Suspect]
     Indication: LUNG NEOPLASM MALIGNANT
     Route: 050
     Dates: start: 19940924, end: 19941221
  3. PARAPLATIN [Suspect]
     Indication: BRAIN NEOPLASM
     Route: 050
     Dates: start: 19960316, end: 19960316
  4. MITOMYCIN-C [Suspect]
     Indication: LUNG NEOPLASM MALIGNANT
     Route: 050
     Dates: start: 19940924, end: 19941221
  5. VINDESINE SULFATE [Suspect]
     Indication: LUNG NEOPLASM MALIGNANT
     Route: 050
     Dates: start: 19940924, end: 19941222
  6. RADIOTHERAPY [Suspect]
     Indication: LUNG NEOPLASM MALIGNANT
     Dates: start: 19960213, end: 19960307

REACTIONS (2)
  - ACUTE MYELOID LEUKAEMIA [None]
  - TREATMENT RELATED SECONDARY MALIGNANCY [None]
